FAERS Safety Report 22049607 (Version 1)
Quarter: 2023Q1

REPORT INFORMATION
  Report Type: Spontaneous
  Country: US (occurrence: None)
  Receive Date: 20230228
  Receipt Date: 20230228
  Transmission Date: 20230418
  Serious: Yes (Hospitalization, Other)
  Sender: FDA-Public Use
  Company Number: None

PATIENT
  Age: 37 Year
  Sex: Female
  Weight: 63 kg

DRUGS (1)
  1. TRIAMCINOLONE [Suspect]
     Active Substance: TRIAMCINOLONE
     Indication: Guttate psoriasis
     Dosage: OTHER ROUTE : INTRAMUSCULAR INJECTION;?
     Route: 050
     Dates: start: 20230103, end: 20230103

REACTIONS (4)
  - Panic attack [None]
  - Anxiety [None]
  - Hypertension [None]
  - Heavy menstrual bleeding [None]

NARRATIVE: CASE EVENT DATE: 20230103
